FAERS Safety Report 13113660 (Version 1)
Quarter: 2017Q1

REPORT INFORMATION
  Report Type: Spontaneous
  Country: US (occurrence: US)
  Receive Date: 20170113
  Receipt Date: 20170113
  Transmission Date: 20170428
  Serious: Yes (Other)
  Sender: FDA-Public Use
  Company Number: None

PATIENT
  Age: 70 Year
  Sex: Male
  Weight: 121.5 kg

DRUGS (13)
  1. FOSINOPRIL [Concomitant]
     Active Substance: FOSINOPRIL
  2. VITAMIN C [Concomitant]
     Active Substance: ASCORBIC ACID
  3. ALLOPURINOL. [Concomitant]
     Active Substance: ALLOPURINOL
  4. BABY ASPIRIN [Concomitant]
     Active Substance: ASPIRIN
  5. NORVASC [Concomitant]
     Active Substance: AMLODIPINE BESYLATE
  6. LABETALOL [Concomitant]
     Active Substance: LABETALOL\LABETALOL HYDROCHLORIDE
  7. VITAMIN B12 [Concomitant]
     Active Substance: CYANOCOBALAMIN
  8. PRALUENT [Suspect]
     Active Substance: ALIROCUMAB
     Indication: BLOOD CHOLESTEROL INCREASED
     Dosage: ?          QUANTITY:1 INJECTION(S);OTHER FREQUENCY:EVERY 2 WEEKS;?
     Route: 058
     Dates: start: 20161015, end: 20161029
  9. CLONIDINE. [Concomitant]
     Active Substance: CLONIDINE
  10. GLIMEPIRIDE. [Concomitant]
     Active Substance: GLIMEPIRIDE
  11. LANTUS [Concomitant]
     Active Substance: INSULIN GLARGINE
  12. GLUCOPHAGE [Concomitant]
     Active Substance: METFORMIN HYDROCHLORIDE
  13. VITAMIN D3 [Concomitant]
     Active Substance: CHOLECALCIFEROL

REACTIONS (3)
  - Headache [None]
  - Blood glucose increased [None]
  - Blood pressure increased [None]

NARRATIVE: CASE EVENT DATE: 20161029
